FAERS Safety Report 6430934-8 (Version None)
Quarter: 2009Q4

REPORT INFORMATION
  Report Type: 
  Country: None (occurrence: None)
  Receive Date: 20091106
  Receipt Date: 20091103
  Transmission Date: 20100525
  Serious: Yes (Hospitalization)
  Sender: FDA-Public Use
  Company Number: US-BAYER-200828635GPV

PATIENT
  Age: 55 Year
  Sex: Male

DRUGS (2)
  1. SORAFENIB [Suspect]
     Indication: RENAL CELL CARCINOMA
     Dosage: TOTAL DAILY DOSE: 400 MG
     Route: 048
     Dates: start: 20071213, end: 20081007
  2. AMG 386 OR PLACEBO [Suspect]
     Indication: METASTATIC NEOPLASM
     Route: 042
     Dates: start: 20071213, end: 20081007

REACTIONS (1)
  - CORONARY ARTERY INSUFFICIENCY [None]
